FAERS Safety Report 9962017 (Version 1)
Quarter: 2014Q1

REPORT INFORMATION
  Report Type: Report from Study
  Country: US (occurrence: US)
  Receive Date: 20140305
  Receipt Date: 20140305
  Transmission Date: 20141002
  Serious: No
  Sender: FDA-Public Use
  Company Number: US-ABBVIE-13P-163-1111798-00

PATIENT
  Age: 29 Year
  Sex: Female
  Weight: 65.83 kg

DRUGS (9)
  1. HUMIRA [Suspect]
     Indication: RHEUMATOID ARTHRITIS
     Dates: start: 201304
  2. HUMIRA [Suspect]
     Indication: PSORIATIC ARTHROPATHY
  3. LIDODERM [Concomitant]
     Indication: PAIN
  4. CLOMIPRAMINE [Concomitant]
     Indication: OBSESSIVE-COMPULSIVE DISORDER
  5. SEROQUEL XR [Concomitant]
     Indication: INSOMNIA
  6. PREDNISONE [Concomitant]
     Indication: INFLAMMATION
  7. ASACOL [Concomitant]
     Indication: COLITIS MICROSCOPIC
  8. MULTI VITAMIN D3 [Concomitant]
     Indication: SUPPLEMENTATION THERAPY
  9. TRAMADOL [Concomitant]
     Indication: PAIN

REACTIONS (5)
  - Asthenia [Unknown]
  - Nervousness [Not Recovered/Not Resolved]
  - Unevaluable event [Not Recovered/Not Resolved]
  - Mental disorder [Unknown]
  - Depression [Not Recovered/Not Resolved]
